FAERS Safety Report 4275122-9 (Version None)
Quarter: 2004Q1

REPORT INFORMATION
  Report Type: 
  Country: None (occurrence: None)
  Receive Date: 20040116
  Receipt Date: 20040105
  Transmission Date: 20041129
  Serious: Yes (Death)
  Sender: FDA-Public Use
  Company Number: FR-SHR-03-017815

PATIENT
  Age: 75 Year
  Sex: Female
  Weight: 49 kg

DRUGS (3)
  1. REFLUDAN [Suspect]
     Indication: HEPARIN-INDUCED THROMBOCYTOPENIA
     Dosage: UNK, AS REQ'D; INTRAVENOUS (SEE IMAGE)
     Route: 042
     Dates: start: 20030703, end: 20030703
  2. REFLUDAN [Suspect]
     Indication: HEPARIN-INDUCED THROMBOCYTOPENIA
     Dosage: UNK, AS REQ'D; INTRAVENOUS (SEE IMAGE)
     Route: 042
     Dates: start: 20030703, end: 20030705
  3. ORGARAN (DANAPAROID SODIUM) [Concomitant]

REACTIONS (6)
  - ACTIVATED PARTIAL THROMBOPLASTIN TIME PROLONGED [None]
  - EPISTAXIS [None]
  - HAEMORRHAGIC DISORDER [None]
  - MYOCARDIAL INFARCTION [None]
  - PERITONEAL HAEMORRHAGE [None]
  - RECTAL HAEMORRHAGE [None]
